FAERS Safety Report 7830089-9 (Version None)
Quarter: 2011Q4

REPORT INFORMATION
  Report Type: 
  Country: None (occurrence: None)
  Receive Date: 20111018
  Receipt Date: 20111004
  Transmission Date: 20120403
  Serious: Yes (Other)
  Sender: FDA-Public Use
  Company Number: 1000022156

PATIENT
  Age: 52 Year
  Sex: Female

DRUGS (2)
  1. ESCITALOPRAM [Suspect]
     Indication: DEPRESSION
     Dosage: 5 MG (5 MG,1 IN 1 D),ORAL
     Route: 048
     Dates: start: 20101229, end: 20110104
  2. ESCITALOPRAM [Suspect]
     Indication: DEPRESSION
     Dosage: 10 MG (10 MG,1 IN 1 D),ORAL
     Route: 048
     Dates: start: 20110105, end: 20110114

REACTIONS (5)
  - BREAST DISCOMFORT [None]
  - ANGIOEDEMA [None]
  - NAUSEA [None]
  - BREAST TENDERNESS [None]
  - GENERALISED OEDEMA [None]
